FAERS Safety Report 12954240 (Version 1)
Quarter: 2016Q4

REPORT INFORMATION
  Report Type: Spontaneous
  Country: US (occurrence: US)
  Receive Date: 20161118
  Receipt Date: 20161118
  Transmission Date: 20170207
  Serious: Yes (Hospitalization, Other)
  Sender: FDA-Public Use
  Company Number: US-BAYER-2016-213931

PATIENT
  Age: 51 Year
  Sex: Male

DRUGS (1)
  1. STIVARGA [Suspect]
     Active Substance: REGORAFENIB
     Indication: COLON CANCER
     Dosage: 160 MG, ONCE FOR 21 DAYS
     Dates: start: 20161008, end: 20161028

REACTIONS (10)
  - Yellow skin [None]
  - Ocular icterus [None]
  - Fatigue [None]
  - Hepatic failure [None]
  - Hepatotoxicity [None]
  - Activities of daily living impaired [None]
  - Decreased appetite [None]
  - Hyperbilirubinaemia [None]
  - Hypertension [None]
  - Quality of life decreased [None]
